FAERS Safety Report 18745001 (Version 1)
Quarter: 2021Q1

REPORT INFORMATION
  Report Type: Spontaneous
  Country: JP (occurrence: JP)
  Receive Date: 20210115
  Receipt Date: 20210115
  Transmission Date: 20210419
  Serious: Yes (Death)
  Sender: FDA-Public Use
  Company Number: NVSJ2021JP000950

PATIENT
  Age: 78 Year
  Sex: Male
  Weight: 56.4 kg

DRUGS (17)
  1. OXYCODONE [Concomitant]
     Active Substance: OXYCODONE
     Indication: PRODUCT USED FOR UNKNOWN INDICATION
     Dosage: 2.5 MG, PRN (15 DOSES PRESCRIBED, ADMINISTERED WHEN PAIN WAS PRESENT)
     Route: 048
     Dates: end: 20200831
  2. CARBOPLATIN INTRAVENOUS INFUSION [Suspect]
     Active Substance: CARBOPLATIN
     Indication: SMALL CELL LUNG CANCER EXTENSIVE STAGE
     Dosage: 240 MG
     Route: 042
     Dates: start: 20200625, end: 20200625
  3. MIYA?BM [Concomitant]
     Active Substance: CLOSTRIDIUM BUTYRICUM SPORES STRAIN M-55
     Indication: PRODUCT USED FOR UNKNOWN INDICATION
     Dosage: 3 DF, TID (AFTER BREAKFAST, LUNCH AND DINNER)
     Route: 065
     Dates: end: 20200831
  4. OXYCONTIN [Concomitant]
     Active Substance: OXYCODONE HYDROCHLORIDE
     Indication: PRODUCT USED FOR UNKNOWN INDICATION
     Dosage: 10 MG, BID (AFTER BREAKFAST AND AT BEDTIME)
     Route: 065
     Dates: end: 20200831
  5. TECENTRIQ [Suspect]
     Active Substance: ATEZOLIZUMAB
     Dosage: 1200 MG
     Route: 042
     Dates: start: 20200723, end: 20200723
  6. MAGMITT [Concomitant]
     Active Substance: MAGNESIUM OXIDE
     Indication: PRODUCT USED FOR UNKNOWN INDICATION
     Dosage: 660 MG, BID (AFTER BREAKFAST AND DINNER)
     Route: 065
     Dates: start: 20200831, end: 20200910
  7. CALONAL [Concomitant]
     Active Substance: ACETAMINOPHEN
     Indication: PRODUCT USED FOR UNKNOWN INDICATION
     Dosage: 2400 MG, QID (AFTER BREAKFAST, LUNCH AND DINNER AND AT BEDTIME)
     Route: 065
  8. FLIVAS [Concomitant]
     Active Substance: NAFTOPIDIL
     Indication: PRODUCT USED FOR UNKNOWN INDICATION
     Dosage: 75 MG, QD (AFTER BREAKFAST)
     Route: 065
     Dates: start: 20200831, end: 20200910
  9. SENNOSIDE [Concomitant]
     Active Substance: SENNOSIDES
     Indication: PRODUCT USED FOR UNKNOWN INDICATION
     Dosage: 24 MG, QD AT BEDTIME
     Route: 065
     Dates: start: 20200831, end: 20200910
  10. AMOXICILLIN. [Concomitant]
     Active Substance: AMOXICILLIN
     Indication: PRODUCT USED FOR UNKNOWN INDICATION
     Dosage: 750 MG, TID (AFTER BREAKFAST, LUNCH AND DINNER)
     Route: 065
     Dates: end: 20200831
  11. TECENTRIQ [Suspect]
     Active Substance: ATEZOLIZUMAB
     Indication: SMALL CELL LUNG CANCER EXTENSIVE STAGE
     Dosage: 1200 MG
     Route: 042
     Dates: start: 20200625, end: 20200625
  12. AUGMENTIN [Concomitant]
     Active Substance: AMOXICILLIN\CLAVULANATE POTASSIUM
     Indication: PRODUCT USED FOR UNKNOWN INDICATION
     Dosage: 3 DF, TID (250RS, AFTER BREAKFAST, LUNCH AND DINNER)
     Route: 065
     Dates: end: 20200831
  13. CARBOPLATIN INTRAVENOUS INFUSION [Suspect]
     Active Substance: CARBOPLATIN
     Dosage: 240 MG
     Route: 042
     Dates: start: 20200723, end: 20200723
  14. BICALUTAMIDE. [Concomitant]
     Active Substance: BICALUTAMIDE
     Indication: PRODUCT USED FOR UNKNOWN INDICATION
     Dosage: 80 MG, QD (AFTER BREAKFAST)
     Route: 065
     Dates: start: 20200831, end: 20200910
  15. ETOPOSIDE INTRAVENOUS INFUSION [Suspect]
     Active Substance: ETOPOSIDE
     Indication: SMALL CELL LUNG CANCER EXTENSIVE STAGE
     Dosage: 150 MG
     Route: 042
     Dates: start: 20200625, end: 20200627
  16. ETOPOSIDE INTRAVENOUS INFUSION [Suspect]
     Active Substance: ETOPOSIDE
     Dosage: 150 MG
     Route: 042
     Dates: start: 20200723, end: 20200725
  17. METOCLOPRAMIDE. [Concomitant]
     Active Substance: METOCLOPRAMIDE
     Indication: PRODUCT USED FOR UNKNOWN INDICATION
     Dosage: 5 MG, PRN (5MG PER ADMINISTRATION, 6 DOSES PRESCRIBED, ADMINISTERED WHEN QUEASY)
     Route: 048
     Dates: start: 20200831, end: 20200910

REACTIONS (1)
  - Pneumonitis [Fatal]

NARRATIVE: CASE EVENT DATE: 20200824
